FAERS Safety Report 19368533 (Version 1)
Quarter: 2021Q2

REPORT INFORMATION
  Report Type: Report from Study
  Country: KR (occurrence: KR)
  Receive Date: 20210602
  Receipt Date: 20210602
  Transmission Date: 20210717
  Serious: Yes (Other)
  Sender: FDA-Public Use
  Company Number: KR-AMGEN INC.-KORCT2021084155

PATIENT
  Age: 50 Year
  Sex: Female

DRUGS (58)
  1. DOXORUBICIN HYDROCHLORIDE. [Concomitant]
     Active Substance: DOXORUBICIN HYDROCHLORIDE
     Dosage: UNK, QD (42)
     Route: 065
     Dates: start: 20190103
  2. OLARATUMAB [Concomitant]
     Active Substance: OLARATUMAB
     Dosage: UNK UNK, QD
     Route: 065
     Dates: start: 20181220
  3. CHLORPHENIRAMINE C [Concomitant]
     Active Substance: CHLORPHENIRAMINE MALEATE
     Dosage: 4 MILLIGRAM, QD
     Route: 065
     Dates: start: 20180921
  4. CHLORPHENIRAMINE C [Concomitant]
     Active Substance: CHLORPHENIRAMINE MALEATE
     Dosage: 4 MILLIGRAM, QD
     Route: 065
     Dates: start: 20181129
  5. DOXORUBICIN HYDROCHLORIDE. [Concomitant]
     Active Substance: DOXORUBICIN HYDROCHLORIDE
     Indication: PRODUCT USED FOR UNKNOWN INDICATION
     Dosage: UNK, QD (60)
     Route: 065
     Dates: start: 20180913
  6. DOXORUBICIN HYDROCHLORIDE. [Concomitant]
     Active Substance: DOXORUBICIN HYDROCHLORIDE
     Dosage: UNK, QD (60)
     Route: 065
     Dates: start: 20181031
  7. PALONOSETRON HYDROCHLORIDE. [Concomitant]
     Active Substance: PALONOSETRON HYDROCHLORIDE
     Dosage: 0.25 MILLIGRAM, QD
     Route: 065
     Dates: start: 20180921
  8. PALONOSETRON HYDROCHLORIDE. [Concomitant]
     Active Substance: PALONOSETRON HYDROCHLORIDE
     Dosage: 0.25 MILLIGRAM, QD
     Route: 065
     Dates: start: 20181010
  9. OLARATUMAB [Concomitant]
     Active Substance: OLARATUMAB
     Dosage: UNK UNK, QD
     Route: 065
     Dates: start: 20190103
  10. OLARATUMAB [Concomitant]
     Active Substance: OLARATUMAB
     Dosage: UNK UNK, QD
     Route: 065
     Dates: start: 20190124
  11. CHLORPHENIRAMINE C [Concomitant]
     Active Substance: CHLORPHENIRAMINE MALEATE
     Dosage: 4 MILLIGRAM, QD
     Route: 065
     Dates: start: 20181122
  12. CHLORPHENIRAMINE C [Concomitant]
     Active Substance: CHLORPHENIRAMINE MALEATE
     Dosage: 4 MILLIGRAM, QD
     Route: 065
     Dates: start: 20181213
  13. CHLORPHENIRAMINE C [Concomitant]
     Active Substance: CHLORPHENIRAMINE MALEATE
     Dosage: 4 MILLIGRAM, QD
     Route: 065
     Dates: start: 20181220
  14. CHLORPHENIRAMINE C [Concomitant]
     Active Substance: CHLORPHENIRAMINE MALEATE
     Dosage: 4 MILLIGRAM, QD
     Route: 065
     Dates: start: 20190110
  15. DOXORUBICIN HYDROCHLORIDE. [Concomitant]
     Active Substance: DOXORUBICIN HYDROCHLORIDE
     Dosage: UNK, QD (60)
     Route: 065
     Dates: start: 20181010
  16. PALONOSETRON HYDROCHLORIDE. [Concomitant]
     Active Substance: PALONOSETRON HYDROCHLORIDE
     Indication: PRODUCT USED FOR UNKNOWN INDICATION
     Dosage: 0.25 MILLIGRAM, QD
     Route: 065
     Dates: start: 20180913
  17. PALONOSETRON HYDROCHLORIDE. [Concomitant]
     Active Substance: PALONOSETRON HYDROCHLORIDE
     Dosage: 0.25 MILLIGRAM, QD
     Route: 065
     Dates: start: 20181031
  18. OLARATUMAB [Concomitant]
     Active Substance: OLARATUMAB
     Dosage: UNK UNK, QD
     Route: 065
     Dates: start: 20181010
  19. OLARATUMAB [Concomitant]
     Active Substance: OLARATUMAB
     Dosage: UNK UNK, QD
     Route: 065
     Dates: start: 20181108
  20. OLARATUMAB [Concomitant]
     Active Substance: OLARATUMAB
     Dosage: UNK UNK, QD
     Route: 065
     Dates: start: 20181122
  21. CHLORPHENIRAMINE C [Concomitant]
     Active Substance: CHLORPHENIRAMINE MALEATE
     Dosage: 4 MILLIGRAM, QD
     Route: 065
     Dates: start: 20190103
  22. DEXAMETHASONE. [Concomitant]
     Active Substance: DEXAMETHASONE
     Indication: PRODUCT USED FOR UNKNOWN INDICATION
     Dosage: 10 MILLIGRAM, QD
     Route: 065
     Dates: start: 20180913
  23. FILGRASTIM [Suspect]
     Active Substance: FILGRASTIM
     Dosage: UNK, QD (300)
     Route: 065
     Dates: start: 20181227, end: 20181227
  24. OLARATUMAB [Concomitant]
     Active Substance: OLARATUMAB
     Indication: PRODUCT USED FOR UNKNOWN INDICATION
     Dosage: UNK UNK, QD
     Route: 065
     Dates: start: 20180913
  25. OLARATUMAB [Concomitant]
     Active Substance: OLARATUMAB
     Dosage: UNK UNK, QD
     Route: 065
     Dates: start: 20180921
  26. OLARATUMAB [Concomitant]
     Active Substance: OLARATUMAB
     Dosage: UNK UNK, QD
     Route: 065
     Dates: start: 20181031
  27. CHLORPHENIRAMINE C [Concomitant]
     Active Substance: CHLORPHENIRAMINE MALEATE
     Dosage: 4 MILLIGRAM, QD
     Route: 065
     Dates: start: 20181031
  28. DEXAMETHASONE. [Concomitant]
     Active Substance: DEXAMETHASONE
     Dosage: 10 MILLIGRAM, QD
     Route: 065
     Dates: start: 20181108
  29. DEXAMETHASONE. [Concomitant]
     Active Substance: DEXAMETHASONE
     Dosage: 10 MILLIGRAM, QD
     Route: 065
     Dates: start: 20181213
  30. PALONOSETRON HYDROCHLORIDE. [Concomitant]
     Active Substance: PALONOSETRON HYDROCHLORIDE
     Dosage: 0.25 MILLIGRAM, QD
     Route: 065
     Dates: start: 20181017
  31. PALONOSETRON HYDROCHLORIDE. [Concomitant]
     Active Substance: PALONOSETRON HYDROCHLORIDE
     Dosage: 0.25 MILLIGRAM, QD
     Route: 065
     Dates: start: 20181122
  32. PALONOSETRON HYDROCHLORIDE. [Concomitant]
     Active Substance: PALONOSETRON HYDROCHLORIDE
     Dosage: 0.25 MILLIGRAM, QD
     Route: 065
     Dates: start: 20180103
  33. OLARATUMAB [Concomitant]
     Active Substance: OLARATUMAB
     Dosage: UNK UNK, QD
     Route: 065
     Dates: start: 20190110
  34. CHLORPHENIRAMINE C [Concomitant]
     Active Substance: CHLORPHENIRAMINE MALEATE
     Indication: PRODUCT USED FOR UNKNOWN INDICATION
     Dosage: 4 MILLIGRAM, QD
     Route: 065
     Dates: start: 20180913
  35. CHLORPHENIRAMINE C [Concomitant]
     Active Substance: CHLORPHENIRAMINE MALEATE
     Dosage: 4 MILLIGRAM, QD
     Route: 065
     Dates: start: 20181010
  36. DEXAMETHASONE. [Concomitant]
     Active Substance: DEXAMETHASONE
     Dosage: 10 MILLIGRAM, QD
     Route: 065
     Dates: start: 20181010
  37. DEXAMETHASONE. [Concomitant]
     Active Substance: DEXAMETHASONE
     Dosage: 10 MILLIGRAM, QD
     Route: 065
     Dates: start: 20181122
  38. DEXAMETHASONE. [Concomitant]
     Active Substance: DEXAMETHASONE
     Dosage: 10 MILLIGRAM, QD
     Route: 065
     Dates: start: 20190110
  39. PALONOSETRON HYDROCHLORIDE. [Concomitant]
     Active Substance: PALONOSETRON HYDROCHLORIDE
     Dosage: 0.25 MILLIGRAM, QD
     Route: 065
     Dates: start: 20181213
  40. OLARATUMAB [Concomitant]
     Active Substance: OLARATUMAB
     Dosage: UNK UNK, QD
     Route: 065
     Dates: start: 20181129
  41. OLARATUMAB [Concomitant]
     Active Substance: OLARATUMAB
     Dosage: UNK UNK, QD
     Route: 065
     Dates: start: 20181213
  42. PALONOSETRON HYDROCHLORIDE. [Concomitant]
     Active Substance: PALONOSETRON HYDROCHLORIDE
     Dosage: 0.25 MILLIGRAM, QD
     Route: 065
     Dates: start: 20181129
  43. FILGRASTIM [Suspect]
     Active Substance: FILGRASTIM
     Dosage: UNK, QD (300)
     Route: 065
     Dates: start: 20181025, end: 20181031
  44. OLARATUMAB [Concomitant]
     Active Substance: OLARATUMAB
     Dosage: UNK UNK, QD
     Route: 065
     Dates: start: 20181017
  45. CHLORPHENIRAMINE C [Concomitant]
     Active Substance: CHLORPHENIRAMINE MALEATE
     Dosage: 4 MILLIGRAM, QD
     Route: 065
     Dates: start: 20181017
  46. CHLORPHENIRAMINE C [Concomitant]
     Active Substance: CHLORPHENIRAMINE MALEATE
     Dosage: 4 MILLIGRAM, QD
     Route: 065
     Dates: start: 20181108
  47. DEXAMETHASONE. [Concomitant]
     Active Substance: DEXAMETHASONE
     Dosage: 10 MILLIGRAM, QD
     Route: 065
     Dates: start: 20180921
  48. DOXORUBICIN HYDROCHLORIDE. [Concomitant]
     Active Substance: DOXORUBICIN HYDROCHLORIDE
     Dosage: UNK, QD (48)
     Route: 065
     Dates: start: 20181122
  49. DOXORUBICIN HYDROCHLORIDE. [Concomitant]
     Active Substance: DOXORUBICIN HYDROCHLORIDE
     Dosage: UNK, QD (42)
     Route: 065
     Dates: start: 20181213
  50. PALONOSETRON HYDROCHLORIDE. [Concomitant]
     Active Substance: PALONOSETRON HYDROCHLORIDE
     Dosage: 0.25 MILLIGRAM, QD
     Route: 065
     Dates: start: 20181108
  51. PALONOSETRON HYDROCHLORIDE. [Concomitant]
     Active Substance: PALONOSETRON HYDROCHLORIDE
     Dosage: 0.25 MILLIGRAM, QD
     Route: 065
     Dates: start: 20181220
  52. FILGRASTIM [Suspect]
     Active Substance: FILGRASTIM
     Indication: PRODUCT USED FOR UNKNOWN INDICATION
     Dosage: UNK, QD (300)
     Route: 065
     Dates: start: 20180927, end: 20181010
  53. FILGRASTIM [Suspect]
     Active Substance: FILGRASTIM
     Dosage: UNK, QD (300)
     Route: 065
     Dates: start: 20181107, end: 20181107
  54. DEXAMETHASONE. [Concomitant]
     Active Substance: DEXAMETHASONE
     Dosage: 10 MILLIGRAM, QD
     Route: 065
     Dates: start: 20181017
  55. DEXAMETHASONE. [Concomitant]
     Active Substance: DEXAMETHASONE
     Dosage: 10 MILLIGRAM, QD
     Route: 065
     Dates: start: 20181031
  56. DEXAMETHASONE. [Concomitant]
     Active Substance: DEXAMETHASONE
     Dosage: 10 MILLIGRAM, QD
     Route: 065
     Dates: start: 20181129
  57. DEXAMETHASONE. [Concomitant]
     Active Substance: DEXAMETHASONE
     Dosage: 10 MILLIGRAM, QD
     Route: 065
     Dates: start: 20181220
  58. DEXAMETHASONE. [Concomitant]
     Active Substance: DEXAMETHASONE
     Dosage: 10 MILLIGRAM, QD
     Route: 065
     Dates: start: 20180103

REACTIONS (2)
  - Neutropenia [Recovered/Resolved]
  - Asthenia [Recovered/Resolved]

NARRATIVE: CASE EVENT DATE: 20180927
